FAERS Safety Report 18306890 (Version 3)
Quarter: 2021Q3

REPORT INFORMATION
  Report Type: Report from Study
  Country: US (occurrence: US)
  Receive Date: 20200924
  Receipt Date: 20210830
  Transmission Date: 20211014
  Serious: Yes (Hospitalization)
  Sender: FDA-Public Use
  Company Number: NVSC2020US259516

PATIENT
  Sex: Female

DRUGS (2)
  1. PIQRAY [Suspect]
     Active Substance: ALPELISIB
     Indication: PRODUCT USED FOR UNKNOWN INDICATION
     Dosage: UNK
     Route: 048
  2. DIFLUCAN [Suspect]
     Active Substance: FLUCONAZOLE
     Indication: PRODUCT USED FOR UNKNOWN INDICATION
     Dosage: UNK
     Route: 065

REACTIONS (9)
  - Candida infection [Unknown]
  - Rash macular [Unknown]
  - Oropharyngeal pain [Unknown]
  - Weight decreased [Unknown]
  - Adverse drug reaction [Unknown]
  - Pyrexia [Unknown]
  - Vomiting [Unknown]
  - Flushing [Unknown]
  - Decreased appetite [Unknown]
